FAERS Safety Report 15658131 (Version 1)
Quarter: 2018Q4

REPORT INFORMATION
  Report Type: Spontaneous
  Country: IN (occurrence: IN)
  Receive Date: 20181126
  Receipt Date: 20181126
  Transmission Date: 20190205
  Serious: Yes (Other)
  Sender: FDA-Public Use
  Company Number: IN-PFIZER INC-2018480760

PATIENT
  Age: 45 Year
  Sex: Female
  Weight: 60 kg

DRUGS (3)
  1. AMIKACIN. [Concomitant]
     Active Substance: AMIKACIN
     Indication: ANTIBIOTIC THERAPY
     Dosage: UNK
  2. TEICOPLANIN [Concomitant]
     Active Substance: TEICOPLANIN
     Indication: ANTIBIOTIC THERAPY
     Dosage: UNK
  3. PREGABALIN. [Suspect]
     Active Substance: PREGABALIN
     Indication: PREMEDICATION
     Dosage: 150 MG, UNK (NIGHT PRIOR TO SURGERY AND AGAIN ON THE MORNING OF SURGERY, 2 H PRIOR TO THE SCHEDULED)
     Route: 048

REACTIONS (2)
  - Product use in unapproved indication [Unknown]
  - Atrial fibrillation [Recovering/Resolving]
